FAERS Safety Report 24838624 (Version 1)
Quarter: 2025Q1

REPORT INFORMATION
  Report Type: Spontaneous
  Country: US (occurrence: US)
  Receive Date: 20250113
  Receipt Date: 20250113
  Transmission Date: 20250409
  Serious: No
  Sender: ANI
  Company Number: US-ANIPHARMA-2024-US-022555

PATIENT
  Age: 64 Year
  Sex: Male

DRUGS (1)
  1. POTASSIUM CITRATE [Suspect]
     Active Substance: POTASSIUM CITRATE
     Indication: Renal lithiasis prophylaxis
     Route: 048
     Dates: start: 20240201

REACTIONS (1)
  - Product residue present [Not Recovered/Not Resolved]

NARRATIVE: CASE EVENT DATE: 20240409
